FAERS Safety Report 14546184 (Version 3)
Quarter: 2018Q1

REPORT INFORMATION
  Report Type: Report from Study
  Country: None (occurrence: US)
  Receive Date: 20180219
  Receipt Date: 20180320
  Transmission Date: 20180509
  Serious: Yes (Hospitalization)
  Sender: FDA-Public Use
  Company Number: US-ABBVIE-18P-163-2260917-00

PATIENT
  Age: 37 Year
  Sex: Male

DRUGS (7)
  1. ANDROGEL [Suspect]
     Active Substance: TESTOSTERONE
     Dosage: 3 PUMPS ONCE A DAY
     Route: 061
  2. ANDROGEL [Suspect]
     Active Substance: TESTOSTERONE
     Indication: BLOOD TESTOSTERONE DECREASED
     Route: 061
     Dates: start: 201707, end: 201712
  3. METOPROLOL. [Concomitant]
     Active Substance: METOPROLOL
     Indication: HYPERTENSION
  4. ULORIC [Concomitant]
     Active Substance: FEBUXOSTAT
     Indication: GOUT
  5. ESCITALOPRAM [Concomitant]
     Active Substance: ESCITALOPRAM OXALATE
     Indication: DEPRESSION
  6. ESCITALOPRAM [Concomitant]
     Active Substance: ESCITALOPRAM OXALATE
     Indication: ANXIETY
  7. ANDROGEL [Suspect]
     Active Substance: TESTOSTERONE
     Route: 061
     Dates: start: 201712

REACTIONS (9)
  - Hyperhidrosis [Recovered/Resolved]
  - Bacterial infection [Recovered/Resolved]
  - Urinary tract infection bacterial [Recovered/Resolved]
  - Urinary retention [Recovered/Resolved]
  - Fatigue [Recovered/Resolved]
  - Bronchitis [Recovered/Resolved]
  - Nitrite urine [Recovered/Resolved]
  - Drug dose omission [Recovered/Resolved]
  - Blood testosterone decreased [Unknown]

NARRATIVE: CASE EVENT DATE: 2017
